FAERS Safety Report 15767595 (Version 2)
Quarter: 2022Q2

REPORT INFORMATION
  Report Type: Spontaneous
  Country: BE (occurrence: BE)
  Receive Date: 20181227
  Receipt Date: 20220509
  Transmission Date: 20220720
  Serious: Yes (Death, Other)
  Sender: FDA-Public Use
  Company Number: BE-EMA-DD-20181214-KORTI_S1-174254

PATIENT
  Age: 48 Year
  Sex: Male

DRUGS (1)
  1. INFLIXIMAB [Suspect]
     Active Substance: INFLIXIMAB
     Indication: Crohn^s disease
     Route: 042

REACTIONS (4)
  - Gliomatosis cerebri [Fatal]
  - Immunodeficiency [Not Recovered/Not Resolved]
  - JC virus CSF test positive [Not Recovered/Not Resolved]
  - Malaise [Unknown]
